FAERS Safety Report 8791955 (Version 1)
Quarter: 2012Q4

REPORT INFORMATION
  Report Type: 
  Country: JP (occurrence: JP)
  Receive Date: 20120918
  Receipt Date: 20120918
  Transmission Date: 20130627
  Serious: Yes (Other)
  Sender: FDA-Public Use
  Company Number: JP-ASTRAZENECA-2012SE72136

PATIENT
  Sex: Female

DRUGS (4)
  1. SEROQUEL [Suspect]
     Route: 048
     Dates: start: 201010
  2. LUVOX [Concomitant]
  3. TRICYCLIC ANTIDEPRESSANTS [Concomitant]
     Indication: DEPRESSION
  4. MEDICINE FOR LIFESTYLE RELATED DISEASE [Concomitant]

REACTIONS (2)
  - Electrocardiogram QT prolonged [Unknown]
  - Intentional drug misuse [Unknown]
